FAERS Safety Report 6501553-X (Version None)
Quarter: 2009Q4

REPORT INFORMATION
  Report Type: 
  Country: None (occurrence: None)
  Receive Date: 20091216
  Receipt Date: 20091210
  Transmission Date: 20100525
  Serious: Yes (Other)
  Sender: FDA-Public Use
  Company Number: B0616187A

PATIENT
  Age: 3 Year
  Sex: Female

DRUGS (1)
  1. ZENTEL [Suspect]
     Indication: HELMINTHIC INFECTION
     Dosage: 2TAB PER DAY
     Route: 048
     Dates: start: 20091203, end: 20091205

REACTIONS (4)
  - ALOPECIA [None]
  - OVERDOSE [None]
  - TRANSAMINASES INCREASED [None]
  - WHITE BLOOD CELL COUNT INCREASED [None]
